FAERS Safety Report 5241164-X (Version None)
Quarter: 2007Q1

REPORT INFORMATION
  Report Type: 
  Country: None (occurrence: None)
  Receive Date: 20070220
  Receipt Date: 20070206
  Transmission Date: 20070707
  Serious: Yes (Death)
  Sender: FDA-Public Use
  Company Number: 2007CG00294

PATIENT
  Age: 33 Year
  Sex: Female

DRUGS (5)
  1. NEXIUM [Suspect]
     Indication: HELICOBACTER INFECTION
     Route: 048
     Dates: start: 20070125
  2. AMOXICILLIN TRIHYDRATE [Suspect]
     Indication: HELICOBACTER INFECTION
     Dates: start: 20070125
  3. FLAGYL [Suspect]
     Indication: HELICOBACTER INFECTION
     Dates: start: 20070125
  4. ALPRAZOLAM [Suspect]
     Indication: ANXIETY
     Dates: start: 20070125
  5. TANGANIL [Suspect]
     Indication: DIZZINESS
     Route: 048
     Dates: start: 20070131

REACTIONS (1)
  - SUDDEN DEATH [None]
